FAERS Safety Report 4393816-1 (Version None)
Quarter: 2004Q3

REPORT INFORMATION
  Report Type: 
  Country: None (occurrence: None)
  Receive Date: 20040706
  Receipt Date: 20040623
  Transmission Date: 20050211
  Serious: No
  Sender: FDA-Public Use
  Company Number: 02100-JPN-04-0114

PATIENT
  Age: 70 Year
  Sex: Male

DRUGS (6)
  1. CILOSTAZOL [Suspect]
     Indication: ARTERIAL STENOSIS LIMB
     Dosage: 200 MG ORAL
     Route: 048
     Dates: start: 20040415, end: 20040416
  2. TICLOPIDINE HCL [Suspect]
     Dosage: 200 MG ORAL
     Route: 048
     Dates: start: 20040415, end: 20040416
  3. CEFCAPENE PIVOXIL HYDROCHLORIDE [Suspect]
     Dosage: 300 MG ORAL
     Route: 048
     Dates: end: 20040416
  4. ASPIRIN [Concomitant]
  5. VALSARTAN [Concomitant]
  6. BETHANECHOL CHLORIDE [Concomitant]

REACTIONS (1)
  - RENAL FAILURE ACUTE [None]
